FAERS Safety Report 12555481 (Version 1)
Quarter: 2016Q3

REPORT INFORMATION
  Report Type: Spontaneous
  Country: US (occurrence: None)
  Receive Date: 20160713
  Receipt Date: 20160713
  Transmission Date: 20161109
  Serious: Yes (Death, Hospitalization)
  Sender: FDA-Public Use
  Company Number: None

PATIENT
  Age: 78 Year
  Sex: Female
  Weight: 40.3 kg

DRUGS (2)
  1. IRINOTECAN [Concomitant]
     Active Substance: IRINOTECAN
  2. MEMANTINE HYDROCHLORIDE. [Suspect]
     Active Substance: MEMANTINE HYDROCHLORIDE
     Dates: end: 20160615

REACTIONS (11)
  - Diarrhoea [None]
  - Electrolyte imbalance [None]
  - Tachypnoea [None]
  - Infectious colitis [None]
  - Respiratory distress [None]
  - Pyrexia [None]
  - Dehydration [None]
  - Parainfluenzae virus infection [None]
  - Anaemia of chronic disease [None]
  - Multiple organ dysfunction syndrome [None]
  - Myocardial ischaemia [None]

NARRATIVE: CASE EVENT DATE: 20160625
